FAERS Safety Report 5615088-X (Version None)
Quarter: 2008Q1

REPORT INFORMATION
  Report Type: 
  Country: None (occurrence: None)
  Receive Date: 20080206
  Receipt Date: 20070413
  Transmission Date: 20080703
  Serious: Yes (Hospitalization, Other)
  Sender: FDA-Public Use
  Company Number: A0639222A

PATIENT
  Age: 88 Year
  Sex: Female

DRUGS (29)
  1. ARIXTRA [Suspect]
     Dosage: 2.5MG PER DAY
     Route: 058
     Dates: start: 20061121, end: 20061122
  2. ACETAMINOPHEN [Concomitant]
  3. APRACLONIDINE HYDROCHLORIDE [Concomitant]
  4. BISACODYL [Concomitant]
  5. CALCIUM CHLORIDE [Concomitant]
  6. CEFAZOLIN [Concomitant]
     Route: 042
  7. HYALURONATE [Concomitant]
  8. DESFLURANE [Concomitant]
     Route: 042
  9. UNKNOWN MEDICATION [Concomitant]
  10. IRON GLUCONATE [Concomitant]
  11. HYDRALAZINE HCL [Concomitant]
  12. HYDROMORPHONE HCL [Concomitant]
  13. LACTATED RINGER'S [Concomitant]
  14. LIDOCAINE [Concomitant]
  15. LIDOCAINE JELLY [Concomitant]
     Route: 061
  16. MIDAZOLAM HCL [Concomitant]
  17. M.V.I. [Concomitant]
  18. NICOTINE [Concomitant]
  19. BUPIVACAINE HYDROCHLORIDE + SODIUM CHLORIDE [Concomitant]
  20. POLYMIXIN B [Concomitant]
  21. BENAZEPRIL HYDROCHLORIDE [Concomitant]
  22. LEVOTHYROXINE SODIUM [Concomitant]
  23. ADVAIR DISKUS 100/50 [Concomitant]
  24. ALBUTEROL [Concomitant]
  25. RANITIDINE [Concomitant]
  26. GLYCOLAX [Concomitant]
  27. AMBROTOSE [Concomitant]
  28. PERCOCET [Concomitant]
  29. HYOSCYAMINE [Concomitant]

REACTIONS (2)
  - DEEP VEIN THROMBOSIS [None]
  - DRUG INEFFECTIVE [None]
